FAERS Safety Report 21041027 (Version 1)
Quarter: 2022Q3

REPORT INFORMATION
  Report Type: Spontaneous
  Country: CO (occurrence: CO)
  Receive Date: 20220704
  Receipt Date: 20220704
  Transmission Date: 20221027
  Serious: Yes (Other)
  Sender: FDA-Public Use
  Company Number: CO-PFIZER INC-PV202200012121

PATIENT
  Age: 56 Year
  Sex: Female

DRUGS (1)
  1. ENBREL [Suspect]
     Active Substance: ETANERCEPT
     Indication: Rheumatoid arthritis
     Dosage: 50 MILLIGRAM, QWK
     Route: 058
     Dates: start: 202111

REACTIONS (11)
  - Rheumatoid arthritis [Unknown]
  - Gingival swelling [Unknown]
  - Gingival discomfort [Unknown]
  - Dysphonia [Unknown]
  - Vision blurred [Unknown]
  - Visual impairment [Unknown]
  - Oropharyngeal pain [Unknown]
  - Oral pain [Unknown]
  - Intentional dose omission [Unknown]
  - Headache [Unknown]
  - Gingival abscess [Unknown]

NARRATIVE: CASE EVENT DATE: 20211101
